FAERS Safety Report 23935497 (Version 1)
Quarter: 2024Q2

REPORT INFORMATION
  Report Type: Spontaneous
  Country: US (occurrence: US)
  Receive Date: 20240604
  Receipt Date: 20240604
  Transmission Date: 20240715
  Serious: Yes (Life-Threatening, Hospitalization)
  Sender: FDA-Public Use
  Company Number: US-RISINGPHARMA-US-2024RISLIT00150

PATIENT
  Age: 14 Year
  Sex: Female

DRUGS (1)
  1. VERAPAMIL HYDROCHLORIDE [Suspect]
     Active Substance: VERAPAMIL HYDROCHLORIDE
     Indication: Product used for unknown indication
     Dosage: MODIFIED-RELEASE CAPSULE, HARD
     Route: 048

REACTIONS (6)
  - Hyperglycaemia [Unknown]
  - Atrioventricular block [Unknown]
  - Hypotension [Unknown]
  - Bradycardia [Unknown]
  - Intentional overdose [Unknown]
  - Off label use [Unknown]
